FAERS Safety Report 5281065-4 (Version None)
Quarter: 2007Q1

REPORT INFORMATION
  Report Type: 
  Country: None (occurrence: None)
  Receive Date: 20070323
  Receipt Date: 20070307
  Transmission Date: 20070707
  Serious: Yes (Hospitalization)
  Sender: FDA-Public Use
  Company Number: 8022635

PATIENT
  Age: 81 Year
  Sex: Male

DRUGS (7)
  1. KEPPRA [Suspect]
     Dosage: 250 MG 2/D
     Dates: start: 20070116
  2. TILDIEM [Suspect]
     Dosage: 200 MG 1/D PO
     Route: 048
     Dates: start: 19970901
  3. FUROSEMIDE [Suspect]
     Dosage: 40 MG 1/D PO
     Route: 048
     Dates: start: 20060531
  4. THYRAX [Concomitant]
  5. CARDIO PCH [Concomitant]
  6. CARBAMAZEPINUM RETARD [Concomitant]
  7. DIPHANTOINE [Concomitant]

REACTIONS (3)
  - DEHYDRATION [None]
  - LIVER DISORDER [None]
  - RENAL DISORDER [None]
